FAERS Safety Report 13761920 (Version 1)
Quarter: 2017Q3

REPORT INFORMATION
  Report Type: Report from Study
  Country: US (occurrence: US)
  Receive Date: 20170718
  Receipt Date: 20170718
  Transmission Date: 20171127
  Serious: Yes (Hospitalization, Other)
  Sender: FDA-Public Use
  Company Number: US-GILEAD-2017-0278897

PATIENT
  Age: 70 Year
  Sex: Male

DRUGS (4)
  1. UPTRAVI [Suspect]
     Active Substance: SELEXIPAG
     Dosage: 200 UG, BID
     Route: 065
     Dates: start: 201706, end: 20170622
  2. AMBRISENTAN [Suspect]
     Active Substance: AMBRISENTAN
     Indication: PULMONARY HYPERTENSION
     Dosage: 10 MG, QD
     Route: 065
     Dates: start: 20150821
  3. UPTRAVI [Suspect]
     Active Substance: SELEXIPAG
     Indication: PRODUCT USED FOR UNKNOWN INDICATION
     Dosage: 400 UG, BID
     Route: 065
  4. SILDENAFIL. [Concomitant]
     Active Substance: SILDENAFIL
     Indication: PULMONARY ARTERIAL HYPERTENSION
     Dates: start: 20161003

REACTIONS (14)
  - Epistaxis [Not Recovered/Not Resolved]
  - Epistaxis [Recovered/Resolved]
  - Dyspnoea exertional [Not Recovered/Not Resolved]
  - Malaise [Not Recovered/Not Resolved]
  - Gingival bleeding [Recovered/Resolved]
  - Disorientation [Not Recovered/Not Resolved]
  - Fatigue [Not Recovered/Not Resolved]
  - Blood disorder [Unknown]
  - Haemoglobin decreased [Not Recovered/Not Resolved]
  - Ammonia increased [Unknown]
  - Depression [Unknown]
  - Fatigue [Not Recovered/Not Resolved]
  - Gingival bleeding [Not Recovered/Not Resolved]
  - Poor quality sleep [Not Recovered/Not Resolved]

NARRATIVE: CASE EVENT DATE: 20150821
